FAERS Safety Report 6795548-9 (Version None)
Quarter: 2010Q2

REPORT INFORMATION
  Report Type: 
  Country: None (occurrence: None)
  Receive Date: 20100625
  Receipt Date: 20100616
  Transmission Date: 20101027
  Serious: Yes (Life-Threatening, Hospitalization, Other)
  Sender: FDA-Public Use
  Company Number: FR-JNJFOC-20100601149

PATIENT
  Age: 25 Year
  Sex: Male

DRUGS (4)
  1. REMICADE [Suspect]
     Indication: COLITIS ULCERATIVE
     Route: 042
  2. REMICADE [Suspect]
     Route: 042
  3. PENTASA [Concomitant]
     Indication: COLITIS ULCERATIVE
     Route: 048
  4. ORAL CONTRACEPTION [Concomitant]

REACTIONS (6)
  - COAGULATION FACTOR VII LEVEL DECREASED [None]
  - LUNG DISORDER [None]
  - PLEURAL EFFUSION [None]
  - RASH PUSTULAR [None]
  - STAPHYLOCOCCAL ABSCESS [None]
  - STAPHYLOCOCCAL SEPSIS [None]
